FAERS Safety Report 21924654 (Version 1)
Quarter: 2023Q1

REPORT INFORMATION
  Report Type: Spontaneous
  Country: BR (occurrence: BR)
  Receive Date: 20230130
  Receipt Date: 20230130
  Transmission Date: 20230417
  Serious: Yes (Other)
  Sender: FDA-Public Use
  Company Number: BR-STRIDES ARCOLAB LIMITED-2023SP001255

PATIENT
  Age: 59 Year
  Sex: Male

DRUGS (3)
  1. PREDNISOLONE [Suspect]
     Active Substance: PREDNISOLONE
     Indication: Type 2 lepra reaction
     Dosage: 1 MILLIGRAM/KILOGRAM; PER DAY; MULTIDRUG THERAPY
     Route: 065
  2. PREDNISOLONE [Suspect]
     Active Substance: PREDNISOLONE
     Dosage: 0.5 MILLIGRAM/KILOGRAM; PER DAY
     Route: 065
  3. THALIDOMIDE [Suspect]
     Active Substance: THALIDOMIDE
     Indication: Type 2 lepra reaction
     Dosage: 200 MILLIGRAM; PER DAY; MULTIDRUG THERAPY
     Route: 065

REACTIONS (3)
  - Arterial thrombosis [Unknown]
  - Cataract [Unknown]
  - Therapy non-responder [Unknown]
